FAERS Safety Report 13217683 (Version 1)
Quarter: 2017Q1

REPORT INFORMATION
  Report Type: Other
  Country: US (occurrence: US)
  Receive Date: 20170210
  Receipt Date: 20170210
  Transmission Date: 20170428
  Serious: No
  Sender: FDA-Public Use
  Company Number: US-ACORDA-ACO_125389_2016

PATIENT
  Age: 48 Year
  Sex: Female
  Weight: 59.41 kg

DRUGS (14)
  1. AMPYRA [Suspect]
     Active Substance: DALFAMPRIDINE
     Indication: GAIT DISTURBANCE
  2. COPAXONE [Suspect]
     Active Substance: GLATIRAMER ACETATE
     Indication: RELAPSING-REMITTING MULTIPLE SCLEROSIS
     Dosage: 40 MG, 3 TIMES WEEKLY
     Route: 058
     Dates: start: 201507
  3. COPAXONE [Suspect]
     Active Substance: GLATIRAMER ACETATE
     Dosage: 20MG, UNK
     Route: 058
     Dates: start: 20100921, end: 201009
  4. MODAFINIL. [Concomitant]
     Active Substance: MODAFINIL
     Indication: FATIGUE
     Dosage: 200 MG, BID
     Route: 048
     Dates: start: 201510
  5. NORTRIPTYLINE [Concomitant]
     Active Substance: NORTRIPTYLINE
     Indication: MIGRAINE PROPHYLAXIS
     Dosage: 50 MG, HS
     Route: 048
     Dates: start: 201511
  6. AMPYRA [Suspect]
     Active Substance: DALFAMPRIDINE
     Indication: MULTIPLE SCLEROSIS
     Dosage: 10 MG, BID
     Route: 048
     Dates: start: 20150806
  7. CALTRATE 600+D [Concomitant]
     Indication: SUPPLEMENTATION THERAPY
     Dosage: 2 DF, UNK
     Route: 048
     Dates: start: 201202
  8. CYANOCOBALAMIN. [Concomitant]
     Active Substance: CYANOCOBALAMIN
     Indication: SUPPLEMENTATION THERAPY
     Dosage: 2000 ??G, UNK
     Route: 048
     Dates: start: 201202
  9. COPAXONE [Suspect]
     Active Substance: GLATIRAMER ACETATE
     Dosage: 20MG, UNK
     Route: 058
     Dates: start: 20100929
  10. OXYBUTYNIN [Concomitant]
     Active Substance: OXYBUTYNIN
     Indication: BLADDER DYSFUNCTION
     Dosage: 10 MG, QD
     Route: 048
     Dates: start: 2015
  11. BACLOFEN. [Concomitant]
     Active Substance: BACLOFEN
     Indication: MUSCLE SPASTICITY
     Dosage: ONE TABLET IN MORNING, ONE TABLET IN NOON AND 2 TABLETS AT BEDTIME
     Route: 048
     Dates: start: 201502
  12. CHOLECALCIFEROL [Concomitant]
     Active Substance: CHOLECALCIFEROL
     Indication: SUPPLEMENTATION THERAPY
     Dosage: 1000 IU, UNK
     Route: 048
     Dates: start: 201303
  13. SYNTHROID [Concomitant]
     Active Substance: LEVOTHYROXINE SODIUM
     Indication: HYPOTHYROIDISM
     Dosage: 100 ??G, QD
     Route: 048
     Dates: start: 201403
  14. IBUPROFEN. [Concomitant]
     Active Substance: IBUPROFEN
     Indication: PRODUCT USED FOR UNKNOWN INDICATION
     Dosage: 200 MG, 3 TABLETS TWICE DAILY AS NEEDED
     Route: 048

REACTIONS (23)
  - Vertigo [Unknown]
  - Dry mouth [Unknown]
  - Nausea [None]
  - Photophobia [Unknown]
  - Cerumen impaction [Unknown]
  - Uhthoff^s phenomenon [Unknown]
  - Palpitations [Unknown]
  - Feeling abnormal [Unknown]
  - Gait disturbance [Unknown]
  - Dysgeusia [Unknown]
  - Vomiting [None]
  - Sensory loss [Unknown]
  - Multiple sclerosis [Unknown]
  - Headache [Unknown]
  - Vision blurred [Unknown]
  - Fatigue [Unknown]
  - Tremor [Unknown]
  - Insomnia [Unknown]
  - Tenderness [Unknown]
  - Injection site bruising [Unknown]
  - Movement disorder [Unknown]
  - Motor dysfunction [Unknown]
  - Blood thyroid stimulating hormone increased [Unknown]

NARRATIVE: CASE EVENT DATE: 201509
